FAERS Safety Report 8221786-4 (Version None)
Quarter: 2012Q1

REPORT INFORMATION
  Report Type: 
  Country: None (occurrence: None)
  Receive Date: 20120320
  Receipt Date: 20120320
  Transmission Date: 20120608
  Serious: Yes (Life-Threatening)
  Sender: FDA-Public Use
  Company Number: None

PATIENT
  Age: 48 Year
  Sex: Male
  Weight: 90.718 kg

DRUGS (1)
  1. GEODON [Suspect]
     Indication: BIPOLAR DISORDER
     Dosage: 40 MG
     Dates: start: 20050408, end: 20050915

REACTIONS (9)
  - INFLUENZA LIKE ILLNESS [None]
  - SEDATION [None]
  - DEPRESSION [None]
  - PALPITATIONS [None]
  - AMNESIA [None]
  - DISORIENTATION [None]
  - CONFUSIONAL STATE [None]
  - DRUG WITHDRAWAL SYNDROME [None]
  - DEMENTIA [None]
